FAERS Safety Report 18345682 (Version 2)
Quarter: 2022Q4

REPORT INFORMATION
  Report Type: Spontaneous
  Country: US (occurrence: None)
  Receive Date: 20201005
  Receipt Date: 20221201
  Transmission Date: 20230113
  Serious: Yes (Hospitalization, Disabling, Other)
  Sender: FDA-Public Use
  Company Number: 2020SF27382

PATIENT
  Age: 22923 Day
  Sex: Female
  Weight: 122.5 kg

DRUGS (92)
  1. FARXIGA [Suspect]
     Active Substance: DAPAGLIFLOZIN PROPANEDIOL
     Indication: Weight decreased
     Route: 048
     Dates: start: 20140725, end: 201502
  2. FARXIGA [Suspect]
     Active Substance: DAPAGLIFLOZIN PROPANEDIOL
     Indication: Blood pressure decreased
     Route: 048
     Dates: start: 20140725, end: 201502
  3. FARXIGA [Suspect]
     Active Substance: DAPAGLIFLOZIN PROPANEDIOL
     Indication: Type 2 diabetes mellitus
     Route: 048
     Dates: start: 20140725, end: 201502
  4. FARXIGA [Suspect]
     Active Substance: DAPAGLIFLOZIN PROPANEDIOL
     Indication: Weight decreased
     Dosage: 5.0MG UNKNOWN
     Route: 048
     Dates: start: 20140820
  5. FARXIGA [Suspect]
     Active Substance: DAPAGLIFLOZIN PROPANEDIOL
     Indication: Blood pressure decreased
     Dosage: 5.0MG UNKNOWN
     Route: 048
     Dates: start: 20140820
  6. FARXIGA [Suspect]
     Active Substance: DAPAGLIFLOZIN PROPANEDIOL
     Indication: Type 2 diabetes mellitus
     Dosage: 5.0MG UNKNOWN
     Route: 048
     Dates: start: 20140820
  7. FARXIGA [Suspect]
     Active Substance: DAPAGLIFLOZIN PROPANEDIOL
     Indication: Weight decreased
     Dosage: UNKNOWN
     Route: 048
     Dates: start: 201407, end: 201502
  8. FARXIGA [Suspect]
     Active Substance: DAPAGLIFLOZIN PROPANEDIOL
     Indication: Blood pressure decreased
     Dosage: UNKNOWN
     Route: 048
     Dates: start: 201407, end: 201502
  9. FARXIGA [Suspect]
     Active Substance: DAPAGLIFLOZIN PROPANEDIOL
     Indication: Type 2 diabetes mellitus
     Dosage: UNKNOWN
     Route: 048
     Dates: start: 201407, end: 201502
  10. FARXIGA [Suspect]
     Active Substance: DAPAGLIFLOZIN PROPANEDIOL
     Indication: Weight decreased
     Dosage: UNKNOWN
     Route: 048
     Dates: end: 2015
  11. FARXIGA [Suspect]
     Active Substance: DAPAGLIFLOZIN PROPANEDIOL
     Indication: Blood pressure decreased
     Dosage: UNKNOWN
     Route: 048
     Dates: end: 2015
  12. FARXIGA [Suspect]
     Active Substance: DAPAGLIFLOZIN PROPANEDIOL
     Indication: Type 2 diabetes mellitus
     Dosage: UNKNOWN
     Route: 048
     Dates: end: 2015
  13. CEPHALEXIN [Concomitant]
     Active Substance: CEPHALEXIN
  14. MISOPROSTOL [Concomitant]
     Active Substance: MISOPROSTOL
  15. METHYLPREDNISOLONE [Concomitant]
     Active Substance: METHYLPREDNISOLONE
  16. ACETAMINOPHEN\OXYCODONE HYDROCHLORIDE [Concomitant]
     Active Substance: ACETAMINOPHEN\OXYCODONE HYDROCHLORIDE
  17. METFORMIN [Concomitant]
     Active Substance: METFORMIN HYDROCHLORIDE
  18. CRESTOR [Concomitant]
     Active Substance: ROSUVASTATIN CALCIUM
  19. POTASSIUM CHLORIDE [Concomitant]
     Active Substance: POTASSIUM CHLORIDE
  20. LANTUS [Concomitant]
     Active Substance: INSULIN GLARGINE
     Indication: Diabetes mellitus
     Dosage: 100 UNITS
  21. EPIPEN [Concomitant]
     Active Substance: EPINEPHRINE
  22. ZOFRAN [Concomitant]
     Active Substance: ONDANSETRON HYDROCHLORIDE
  23. ZETIA [Concomitant]
     Active Substance: EZETIMIBE
  24. PROGESTERONE [Concomitant]
     Active Substance: PROGESTERONE
  25. ZYRTEC [Concomitant]
     Active Substance: CETIRIZINE HYDROCHLORIDE
  26. NIASPAN [Concomitant]
     Active Substance: NIACIN
  27. NEURONTIN [Concomitant]
     Active Substance: GABAPENTIN
  28. SPIRONOLACTONE [Concomitant]
     Active Substance: SPIRONOLACTONE
  29. ALBUTEROL [Concomitant]
     Active Substance: ALBUTEROL
  30. FENTANYL [Concomitant]
     Active Substance: FENTANYL
  31. AMIODARONE [Concomitant]
     Active Substance: AMIODARONE
  32. MEROPENEM [Concomitant]
     Active Substance: MEROPENEM
  33. MIRALAX [Concomitant]
     Active Substance: POLYETHYLENE GLYCOL 3350
  34. SEROQUEL [Concomitant]
     Active Substance: QUETIAPINE FUMARATE
  35. FLUCONAZOLE [Concomitant]
     Active Substance: FLUCONAZOLE
     Route: 065
     Dates: start: 20200708
  36. HUMALOG [Concomitant]
     Active Substance: INSULIN LISPRO
     Indication: Diabetes mellitus
     Route: 065
     Dates: start: 20200708
  37. HUMALOG [Concomitant]
     Active Substance: INSULIN LISPRO
     Indication: Diabetes mellitus
     Dosage: 100 UNITS
     Route: 065
  38. PHENAZOPYRIDINE [Concomitant]
     Active Substance: PHENAZOPYRIDINE
     Route: 065
     Dates: start: 20200331
  39. VITAMIN D3 [Concomitant]
     Active Substance: CHOLECALCIFEROL
     Route: 065
     Dates: start: 20200713
  40. ANORO ELLIPTA [Concomitant]
     Active Substance: UMECLIDINIUM BROMIDE\VILANTEROL TRIFENATATE
     Route: 065
     Dates: start: 20191101
  41. AMMONIUM CHLORIDE\DEXTROMETHORPHAN\SODIUM CITRATE [Concomitant]
     Active Substance: AMMONIUM CHLORIDE\DEXTROMETHORPHAN\SODIUM CITRATE
     Route: 065
     Dates: start: 20191101
  42. CIPROFLOXACIN [Concomitant]
     Active Substance: CIPROFLOXACIN
     Route: 065
     Dates: start: 20191101
  43. MELOXICAM [Concomitant]
     Active Substance: MELOXICAM
     Route: 065
     Dates: start: 20191101
  44. OMEPRAZOLE [Concomitant]
     Active Substance: OMEPRAZOLE
     Route: 065
     Dates: start: 20191101
  45. CLOBETASOL [Concomitant]
     Active Substance: CLOBETASOL
     Route: 065
     Dates: start: 20191101
  46. VALSARTAN [Concomitant]
     Active Substance: VALSARTAN
     Route: 065
     Dates: start: 20191101
  47. NOVOLOG [Concomitant]
     Active Substance: INSULIN ASPART
     Route: 065
     Dates: start: 20191101
  48. LEVEMIR [Concomitant]
     Active Substance: INSULIN DETEMIR
     Route: 065
     Dates: start: 20191101
  49. AZITHROMYCIN [Concomitant]
     Active Substance: AZITHROMYCIN
     Route: 065
     Dates: start: 20191101
  50. POTASSIUM [Concomitant]
     Active Substance: POTASSIUM
     Route: 065
     Dates: start: 20191101
  51. LEVOFLOXACIN [Concomitant]
     Active Substance: LEVOFLOXACIN
     Route: 065
     Dates: start: 20191101
  52. CYCLOBENZAPRINE [Concomitant]
     Active Substance: CYCLOBENZAPRINE
     Route: 065
     Dates: start: 20191101
  53. NYSTATIN [Concomitant]
     Active Substance: NYSTATIN
     Route: 065
     Dates: start: 20191101
  54. TOBRAMYCIN [Concomitant]
     Active Substance: TOBRAMYCIN
  55. CEPHALOTHIN [Concomitant]
     Active Substance: CEPHALOTHIN
  56. ERTAPENEM [Concomitant]
     Active Substance: ERTAPENEM
  57. IMIPENEM [Concomitant]
     Active Substance: IMIPENEM
  58. PIPERACILLIN [Concomitant]
     Active Substance: PIPERACILLIN
  59. SULFAMETHOXAZOLE\TRIMETHOPRIM [Concomitant]
     Active Substance: SULFAMETHOXAZOLE\TRIMETHOPRIM
  60. NITROFURANTOIN [Concomitant]
     Active Substance: NITROFURANTOIN
  61. CEFEPIME [Concomitant]
     Active Substance: CEFEPIME HYDROCHLORIDE
  62. DOXYCYCLINE HYCLATE [Concomitant]
     Active Substance: DOXYCYCLINE HYCLATE
  63. PROAIR HFA [Concomitant]
     Active Substance: ALBUTEROL SULFATE
  64. INDAPAMIDE [Concomitant]
     Active Substance: INDAPAMIDE
  65. BENZONATATE [Concomitant]
     Active Substance: BENZONATATE
  66. BUMETANIDE [Concomitant]
     Active Substance: BUMETANIDE
  67. CODEINE [Concomitant]
     Active Substance: CODEINE
  68. GUAIFENESIN [Concomitant]
     Active Substance: GUAIFENESIN
  69. IRBESARTAN [Concomitant]
     Active Substance: IRBESARTAN
  70. LIDODERM [Concomitant]
     Active Substance: LIDOCAINE
  71. ROBAXIN [Concomitant]
     Active Substance: METHOCARBAMOL
  72. IODINE [Concomitant]
     Active Substance: IODINE
  73. PENICILLIN [Concomitant]
     Active Substance: PENICILLIN
  74. UNSPECIFIED INGREDIENT [Concomitant]
     Active Substance: UNSPECIFIED INGREDIENT
  75. SODIUM CHLORIDE [Concomitant]
     Active Substance: SODIUM CHLORIDE
  76. DUONEB [Concomitant]
     Active Substance: ALBUTEROL SULFATE\IPRATROPIUM BROMIDE
  77. GENTAMICIN [Concomitant]
     Active Substance: GENTAMICIN
  78. CEFAZOLIN [Concomitant]
     Active Substance: CEFAZOLIN
  79. WELCHOL [Concomitant]
     Active Substance: COLESEVELAM HYDROCHLORIDE
  80. BACTROBAN [Concomitant]
     Active Substance: MUPIROCIN\MUPIROCIN CALCIUM
  81. FLUTICASONE [Concomitant]
     Active Substance: FLUTICASONE
  82. TOVIAZ [Concomitant]
     Active Substance: FESOTERODINE FUMARATE
  83. SOLIFENACIN [Concomitant]
     Active Substance: SOLIFENACIN
  84. BYDUREON [Concomitant]
     Active Substance: EXENATIDE
  85. ELIQUIS [Concomitant]
     Active Substance: APIXABAN
     Indication: Diabetes mellitus
     Route: 065
     Dates: start: 20200708
  86. ELIQUIS [Concomitant]
     Active Substance: APIXABAN
     Indication: Diabetes mellitus
     Dosage: 100 UNITS
     Route: 065
  87. ISOSORBIDE [Concomitant]
     Active Substance: ISOSORBIDE
     Indication: Diabetes mellitus
     Route: 065
     Dates: start: 20200708
  88. ISOSORBIDE [Concomitant]
     Active Substance: ISOSORBIDE
     Indication: Diabetes mellitus
     Dosage: 100 UNITS
     Route: 065
  89. VITAMIN D [Concomitant]
     Active Substance: VITAMIN D NOS
     Indication: Diabetes mellitus
     Route: 065
     Dates: start: 20200708
  90. VITAMIN D [Concomitant]
     Active Substance: VITAMIN D NOS
     Indication: Diabetes mellitus
     Dosage: 100 UNITS
     Route: 065
  91. DIFLUCAN [Concomitant]
     Active Substance: FLUCONAZOLE
     Indication: Diabetes mellitus
     Route: 065
     Dates: start: 20200708
  92. DIFLUCAN [Concomitant]
     Active Substance: FLUCONAZOLE
     Indication: Diabetes mellitus
     Dosage: 100 UNITS
     Route: 065

REACTIONS (14)
  - Necrotising fasciitis [Unknown]
  - Septic shock [Unknown]
  - Fournier^s gangrene [Unknown]
  - Perirectal abscess [Unknown]
  - Sepsis [Unknown]
  - Cellulitis [Unknown]
  - Abscess limb [Unknown]
  - Urinary tract infection [Unknown]
  - Pain [Unknown]
  - Scar [Unknown]
  - Muscular weakness [Unknown]
  - Gait disturbance [Unknown]
  - Back pain [Unknown]
  - Depression [Unknown]

NARRATIVE: CASE EVENT DATE: 20141209
